FAERS Safety Report 6461860-6 (Version None)
Quarter: 2009Q4

REPORT INFORMATION
  Report Type: 
  Country: None (occurrence: None)
  Receive Date: 20091130
  Receipt Date: 20091118
  Transmission Date: 20100525
  Serious: Yes (Hospitalization)
  Sender: FDA-Public Use
  Company Number: PHHY2009PL43457

PATIENT
  Sex: Female
  Weight: 52 kg

DRUGS (12)
  1. MYFORTIC [Suspect]
     Indication: RENAL TRANSPLANT
     Dosage: 1440 MG/DAY
     Route: 048
     Dates: start: 20090713
  2. MYFORTIC [Suspect]
     Dosage: 720 MG/DAY
     Route: 048
     Dates: start: 20091009, end: 20091026
  3. MYFORTIC [Suspect]
     Dosage: 1440 MG/DAY
     Route: 048
     Dates: start: 20091026, end: 20091111
  4. NEORAL [Suspect]
     Indication: RENAL TRANSPLANT
     Dosage: 100 MG/DAY
     Dates: start: 20091026
  5. NEORAL [Suspect]
     Dosage: 250 MG/DAY
     Dates: start: 20090909
  6. NEORAL [Suspect]
     Dosage: 200 MG
     Dates: start: 20091007
  7. NEORAL [Suspect]
     Dosage: 100 MG
     Dates: start: 20091026
  8. ENCORTON [Suspect]
     Indication: RENAL TRANSPLANT
     Dosage: 10 MG
  9. ENCORTON [Suspect]
     Dosage: 10 MG, UNK
     Dates: start: 20090909
  10. FUROSEMIDE [Suspect]
  11. LETROX [Concomitant]
     Indication: HYPOTHYROIDISM
     Dosage: 75 UG/DAY
     Dates: start: 20060101
  12. LETROX [Concomitant]
     Dosage: 100 UG/DAY
     Dates: start: 20091007

REACTIONS (18)
  - ANAEMIA [None]
  - ASTHENIA [None]
  - BLOOD SODIUM DECREASED [None]
  - BODY TEMPERATURE DECREASED [None]
  - COMPLICATIONS OF TRANSPLANTED KIDNEY [None]
  - CONJUNCTIVAL PALLOR [None]
  - CYTOMEGALOVIRUS INFECTION [None]
  - DECREASED APPETITE [None]
  - DRUG ABUSE [None]
  - HYPOTHYROIDISM [None]
  - LIP OEDEMA [None]
  - ORAL FUNGAL INFECTION [None]
  - ORAL PAIN [None]
  - PALLOR [None]
  - PANCYTOPENIA [None]
  - TONGUE DISCOLOURATION [None]
  - TREMOR [None]
  - WEIGHT DECREASED [None]
